FAERS Safety Report 4659311-7 (Version None)
Quarter: 2005Q2

REPORT INFORMATION
  Report Type: 
  Country: None (occurrence: None)
  Receive Date: 20050510
  Receipt Date: 20050425
  Transmission Date: 20051028
  Serious: Yes (Other)
  Sender: FDA-Public Use
  Company Number: B0379902A

PATIENT
  Sex: Female

DRUGS (2)
  1. ZINACEF [Suspect]
     Indication: ANTIBACTERIAL PROPHYLAXIS
     Dosage: INTRAVENOUS
     Route: 042
  2. LOCAL ANESTHETIC [Concomitant]

REACTIONS (2)
  - CARDIAC ARREST [None]
  - COMPLICATIONS OF MATERNAL EXPOSURE TO THERAPEUTIC DRUGS [None]
